FAERS Safety Report 16282248 (Version 1)
Quarter: 2019Q2

REPORT INFORMATION
  Report Type: Spontaneous
  Country: DE (occurrence: DE)
  Receive Date: 20190507
  Receipt Date: 20190507
  Transmission Date: 20190711
  Serious: Yes (Other)
  Sender: FDA-Public Use
  Company Number: DE-BAYER-2019-086830

PATIENT
  Age: 49 Year
  Sex: Female
  Weight: 70 kg

DRUGS (1)
  1. CIPROBAY 500 MG [Suspect]
     Active Substance: CIPROFLOXACIN
     Dosage: 500 MG FOR 7 DAYS

REACTIONS (10)
  - Tendon pain [None]
  - Diarrhoea [None]
  - Tooth injury [None]
  - Disturbance in attention [None]
  - Asthenia [None]
  - Conduction disorder [None]
  - Food intolerance [None]
  - Cartilage injury [None]
  - Fatigue [None]
  - Speech disorder [None]
